FAERS Safety Report 6037699-2 (Version None)
Quarter: 2009Q1

REPORT INFORMATION
  Report Type: 
  Country: None (occurrence: None)
  Receive Date: 20090113
  Receipt Date: 20081229
  Transmission Date: 20090719
  Serious: Yes (Other)
  Sender: FDA-Public Use
  Company Number: 1022556-2009-00001

PATIENT
  Age: 87 Year
  Sex: Female
  Weight: 61.6892 kg

DRUGS (8)
  1. ICY HOT PATCH [Suspect]
     Dosage: 1 PATCH, TOPICAL
     Route: 061
     Dates: start: 20080128
  2. ALDACTONE [Concomitant]
  3. NORVASC [Concomitant]
  4. CAPTOPRIL [Concomitant]
  5. LEVOTHROID [Concomitant]
  6. COUMADIN [Concomitant]
  7. LASIX [Concomitant]
  8. LANOXIN [Concomitant]

REACTIONS (2)
  - APPLICATION SITE CELLULITIS [None]
  - IMPAIRED HEALING [None]
